FAERS Safety Report 4513779-5 (Version None)
Quarter: 2004Q4

REPORT INFORMATION
  Report Type: 
  Country: None (occurrence: None)
  Receive Date: 20041130
  Receipt Date: 20041025
  Transmission Date: 20050328
  Serious: No
  Sender: FDA-Public Use
  Company Number: US-GLAXOSMITHKLINE-A0531230A

PATIENT
  Sex: Female

DRUGS (1)
  1. WELLBUTRIN [Suspect]
     Indication: ILL-DEFINED DISORDER
     Dosage: 150MG PER DAY
     Route: 048

REACTIONS (4)
  - DIZZINESS [None]
  - HEADACHE [None]
  - PHARYNGOLARYNGEAL PAIN [None]
  - RASH [None]
